FAERS Safety Report 4596774-X (Version None)
Quarter: 2005Q1

REPORT INFORMATION
  Report Type: 
  Country: None (occurrence: None)
  Receive Date: 20050228
  Receipt Date: 20050221
  Transmission Date: 20050727
  Serious: No
  Sender: FDA-Public Use
  Company Number: ZONI002116

PATIENT
  Age: 49 Year
  Sex: Female

DRUGS (3)
  1. EXCEGRAN (ZONISAMIDE) [Suspect]
     Dosage: 200 MG , 1 IN 1 D, ORAL
     Route: 048
     Dates: start: 20050112, end: 20050214
  2. AROMASIN [Concomitant]
  3. AREDIA [Concomitant]

REACTIONS (2)
  - GRANULOCYTOPENIA [None]
  - NASOPHARYNGITIS [None]
